FAERS Safety Report 4638945-X (Version None)
Quarter: 2005Q2

REPORT INFORMATION
  Report Type: 
  Country: None (occurrence: None)
  Receive Date: 20050419
  Receipt Date: 20050331
  Transmission Date: 20051028
  Serious: Yes (Hospitalization)
  Sender: FDA-Public Use
  Company Number: JP-GLAXOSMITHKLINE-B0376565A

PATIENT
  Age: 65 Year
  Sex: Male

DRUGS (6)
  1. ZOVIRAX [Suspect]
     Indication: HERPES ZOSTER
     Dosage: 400MG TWICE PER DAY
     Route: 048
     Dates: start: 20050328
  2. VASOLAN [Concomitant]
     Route: 065
  3. SELBEX [Concomitant]
     Route: 048
  4. MAGNESIUM OXIDE [Concomitant]
     Route: 048
  5. ZANTAC [Concomitant]
     Route: 065
  6. RISPERDAL [Concomitant]
     Route: 048

REACTIONS (1)
  - RESTLESSNESS [None]
